FAERS Safety Report 7078591-4 (Version None)
Quarter: 2010Q4

REPORT INFORMATION
  Report Type: 
  Country: None (occurrence: None)
  Receive Date: 20101101
  Receipt Date: 20101101
  Transmission Date: 20110411
  Serious: Yes (Other)
  Sender: FDA-Public Use
  Company Number: None

PATIENT
  Sex: Male

DRUGS (15)
  1. CHANTIX [Suspect]
     Indication: SMOKING CESSATION THERAPY
     Dates: start: 20100803, end: 20100920
  2. CHANTIX [Suspect]
     Indication: SMOKING CESSATION THERAPY
     Dates: start: 20100702, end: 20100802
  3. AMANTADINE [Concomitant]
  4. BENZONATATE [Concomitant]
  5. CYCLOBENZAPRINE HCL [Concomitant]
  6. GLUCASAMINE CHONDR [Concomitant]
  7. HALOPERIDOL [Concomitant]
  8. HALOPERIDOL DECONATE [Concomitant]
  9. HYDROCHLOROTHIAZIDE [Concomitant]
  10. ACETAMINOPHEN AND HYDROCODONE BITARTRATE [Concomitant]
  11. HYDROXYZINE PAMOATE [Concomitant]
  12. LISINOPRIL [Concomitant]
  13. MULTI-VITAMIN [Concomitant]
  14. OMEPRAZOLE [Concomitant]
  15. SIMVASTATIN [Concomitant]

REACTIONS (7)
  - AFFECT LABILITY [None]
  - DISSOCIATION [None]
  - DYSTONIA [None]
  - EMOTIONAL DISORDER [None]
  - IMPRISONMENT [None]
  - PARANOIA [None]
  - TARDIVE DYSKINESIA [None]
